FAERS Safety Report 9590332 (Version 1)
Quarter: 2013Q4

REPORT INFORMATION
  Report Type: Spontaneous
  Country: US (occurrence: US)
  Receive Date: 20131003
  Receipt Date: 20131003
  Transmission Date: 20140711
  Serious: No
  Sender: FDA-Public Use
  Company Number: US-AMGEN-USASP2012077117

PATIENT
  Age: 79 Year
  Sex: Female
  Weight: 56.24 kg

DRUGS (18)
  1. ENBREL [Suspect]
     Indication: RHEUMATOID ARTHRITIS
     Dosage: 50 MG, QWK
     Route: 058
     Dates: start: 2011
  2. HUMIRA [Concomitant]
     Dosage: 40 MG/0.8
  3. PROTONIX [Concomitant]
     Dosage: 20 MG, UNK
  4. MEDROL                             /00049601/ [Concomitant]
     Dosage: 4 MG, UNK
  5. LOPRESSOR [Concomitant]
     Dosage: 50 MG, UNK
  6. METHOTREXATE [Concomitant]
     Dosage: 2.5 MG, UNK
  7. LIPITOR [Concomitant]
     Dosage: 10 MG, UNK
  8. SYNTHROID [Concomitant]
     Dosage: 75 MUG, UNK
  9. CITRACAL PLUS [Concomitant]
     Dosage: UNK
  10. IBUPROFEN [Concomitant]
     Dosage: 200 MG, UNK
  11. PLAVIX [Concomitant]
     Dosage: 75 MG, UNK
  12. FISH OIL [Concomitant]
     Dosage: UNK
  13. MULTIVITAMINS, PLAIN [Concomitant]
     Dosage: UNK
  14. NIACIN [Concomitant]
     Dosage: 500 MG, UNK
  15. FERROUS SULFATE [Concomitant]
     Dosage: 5 GR
  16. LEUCOVORIN CA [Concomitant]
     Dosage: 200 MG, UNK
  17. CRANBERRY                          /01512301/ [Concomitant]
     Dosage: 200 MG, UNK
  18. ORENCIA [Concomitant]
     Dosage: UNK

REACTIONS (1)
  - Drug ineffective [Unknown]
